FAERS Safety Report 16644569 (Version 2)
Quarter: 2021Q3

REPORT INFORMATION
  Report Type: Report from Study
  Country: GB (occurrence: GB)
  Receive Date: 20190729
  Receipt Date: 20210728
  Transmission Date: 20211014
  Serious: Yes (Other)
  Sender: FDA-Public Use
  Company Number: GB-MYLANLABS-2019M1069844

PATIENT
  Age: 68 Year
  Sex: Female

DRUGS (58)
  1. PACLITAXEL. [Suspect]
     Active Substance: PACLITAXEL
     Dosage: 108 MILLIGRAM, QW
     Route: 042
     Dates: start: 20180403
  2. VORHYALURONIDASE ALFA [Suspect]
     Active Substance: HYALURONIDASE (HUMAN RECOMBINANT)
     Indication: HER2 POSITIVE BREAST CANCER
     Dosage: 600 MG, EVERY 3 WEEKS
     Route: 058
     Dates: start: 20160617
  3. DEXAMETHASONE. [Concomitant]
     Active Substance: DEXAMETHASONE
     Dosage: 8 MILLIGRAM, QW
     Route: 042
     Dates: start: 20160617, end: 20161111
  4. DALTEPARIN [Concomitant]
     Active Substance: DALTEPARIN
     Dosage: UNK UNK, QD (5000 UNITS)
     Route: 058
     Dates: start: 20180325, end: 20180328
  5. NYSTATIN. [Concomitant]
     Active Substance: NYSTATIN
     Dosage: 1 MILLILITER, QD (LIQUID)
     Route: 048
     Dates: start: 20180926
  6. METOCLOPRAMIDE. [Concomitant]
     Active Substance: METOCLOPRAMIDE
     Dosage: 10 MILLIGRAM
     Route: 048
     Dates: start: 20160617
  7. POLYFUSOR PHOSPHAT [Concomitant]
     Dosage: 100 MILLILITER, QD
     Route: 042
     Dates: start: 20180918, end: 20180918
  8. DEXAMETHASONE. [Concomitant]
     Active Substance: DEXAMETHASONE
     Dosage: 8 MILLIGRAM, QW
     Route: 042
     Dates: start: 20180220, end: 20180424
  9. DEXAMETHASONE. [Concomitant]
     Active Substance: DEXAMETHASONE
     Dosage: 16 MILLIGRAM, QW
     Route: 048
     Dates: start: 20180717, end: 20180719
  10. SALINE                             /00075401/ [Concomitant]
     Active Substance: SODIUM CHLORIDE
     Dosage: 500 MILLILITER, QD
     Route: 042
     Dates: start: 20180913, end: 20180913
  11. SALINE                             /00075401/ [Concomitant]
     Active Substance: SODIUM CHLORIDE
     Dosage: 500 MILLILITER, QD
     Route: 042
     Dates: start: 20180918, end: 20180918
  12. GABAPENTIN. [Concomitant]
     Active Substance: GABAPENTIN
     Dosage: 1800 MILLIGRAM, QD
     Route: 048
     Dates: start: 20180213
  13. ORAMORPH [Concomitant]
     Active Substance: MORPHINE SULFATE
     Dosage: LIQUID
     Route: 048
     Dates: start: 20180913
  14. CHLORPHENAMINE [Concomitant]
     Active Substance: CHLORPHENIRAMINE MALEATE
     Dosage: 10 MILLIGRAM, QW
     Route: 042
     Dates: start: 20160617, end: 20161014
  15. METOCLOPRAMIDE. [Concomitant]
     Active Substance: METOCLOPRAMIDE
     Indication: GASTROOESOPHAGEAL REFLUX DISEASE
     Dosage: 10 MILLIGRAM
     Route: 048
     Dates: start: 20170214
  16. CYCLIZINE [Concomitant]
     Active Substance: CYCLIZINE
     Indication: NAUSEA
     Dosage: 150 MILLIGRAM, QD
     Route: 048
     Dates: start: 20180327, end: 20180522
  17. DEXAMETHASONE. [Concomitant]
     Active Substance: DEXAMETHASONE
     Dosage: 12 MILLIGRAM, QW
     Route: 048
     Dates: start: 20180721, end: 20180723
  18. DEXAMETHASONE. [Concomitant]
     Active Substance: DEXAMETHASONE
     Dosage: 10 MILLIGRAM, QW
     Route: 048
     Dates: start: 20180723, end: 20180801
  19. ONDANSETRON [Concomitant]
     Active Substance: ONDANSETRON
     Dosage: 8 MILLIGRAM, QW
     Route: 048
     Dates: start: 20160617, end: 20161014
  20. GABAPENTIN. [Concomitant]
     Active Substance: GABAPENTIN
     Dosage: 2700 MILLIGRAM, QD
     Route: 048
     Dates: start: 20171114, end: 20180212
  21. MEROPENEM. [Concomitant]
     Active Substance: MEROPENEM
     Dosage: 3 GRAM, QD
     Route: 042
     Dates: start: 20180913, end: 20180921
  22. LAXIDO [Concomitant]
     Active Substance: POLYETHYLENE GLYCOL 3350\POTASSIUM CHLORIDE\SODIUM BICARBONATE\SODIUM CHLORIDE
     Indication: CONSTIPATION
     Dosage: UNK (1 SACHET)
     Route: 048
     Dates: start: 20170201
  23. DENOSUMAB [Concomitant]
     Active Substance: DENOSUMAB
     Dosage: 120 MILLIGRAM, MONTHLY
     Route: 058
     Dates: start: 20160701
  24. ADCAL D3 [Concomitant]
     Active Substance: CALCIUM CARBONATE\CHOLECALCIFEROL
     Dosage: 1 DOSAGE FORM, QD
     Route: 065
     Dates: start: 20160701
  25. HYPROMELLOSE [Concomitant]
     Active Substance: HYPROMELLOSES
     Dosage: 1 GTT DROPS
     Route: 047
     Dates: start: 20160802
  26. MAALOX ANTACID [Concomitant]
     Active Substance: ALUMINUM HYDROXIDE\DIMETHICONE\MAGNESIUM HYDROXIDE
     Indication: GASTROOESOPHAGEAL REFLUX DISEASE
     Dosage: 10 MILLILITER
     Route: 048
     Dates: start: 20170214, end: 20170418
  27. AROMASIN [Suspect]
     Active Substance: EXEMESTANE
     Indication: HER2 POSITIVE BREAST CANCER
     Dosage: 25 MILLIGRAM, QD
     Route: 048
     Dates: start: 20171115, end: 20180213
  28. LETROZOLE. [Suspect]
     Active Substance: LETROZOLE
     Indication: HER2 POSITIVE BREAST CANCER
     Dosage: 2.5 MG, 1X/DAY
     Route: 048
     Dates: start: 20161111, end: 20171114
  29. DALTEPARIN [Concomitant]
     Active Substance: DALTEPARIN
     Dosage: UNK UNK, QD (5000 UNITS)
     Route: 058
     Dates: start: 20180711, end: 20180721
  30. NOZINAN                            /00038601/ [Concomitant]
     Active Substance: LEVOMEPROMAZINE
     Dosage: 1 MILLILITER
     Route: 048
     Dates: start: 20180917, end: 20180926
  31. POLYFUSOR PHOSPHAT [Concomitant]
     Dosage: 150 MILLILITER, QD
     Route: 042
     Dates: start: 20180917, end: 20180917
  32. VANCOMYCIN [Concomitant]
     Active Substance: VANCOMYCIN
     Dosage: 1 GRAM, QD
     Route: 042
     Dates: start: 20180327, end: 20180327
  33. PACLITAXEL. [Suspect]
     Active Substance: PACLITAXEL
     Dosage: 141 MILLIGRAM, QW
     Route: 042
     Dates: start: 20180220
  34. GABAPENTIN. [Concomitant]
     Active Substance: GABAPENTIN
     Dosage: 1200 MILLIGRAM, QD
     Route: 048
     Dates: start: 20170214
  35. RANITIDINE. [Concomitant]
     Active Substance: RANITIDINE
     Dosage: 50 MILLIGRAM, QW
     Route: 042
     Dates: start: 20180220, end: 20180424
  36. AQUEOUS                            /00498501/ [Concomitant]
     Dosage: UNK
     Route: 061
     Dates: start: 20160819, end: 20161011
  37. CIPROFLOXACIN. [Concomitant]
     Active Substance: CIPROFLOXACIN
     Dosage: 500 MILLIGRAM, BID
     Route: 048
     Dates: start: 20180326, end: 20180327
  38. POLYFUSOR PHOSPHAT [Concomitant]
     Dosage: 100 MILLILITER, QD
     Route: 042
     Dates: start: 20180920, end: 20180920
  39. TRASTUZUMAB. [Suspect]
     Active Substance: TRASTUZUMAB
     Indication: HER2 POSITIVE BREAST CANCER
     Dosage: 600 MILLIGRAM
     Route: 058
     Dates: start: 20160617
  40. FEMARA [Suspect]
     Active Substance: LETROZOLE
     Indication: HER2 POSITIVE BREAST CANCER
     Dosage: 2.5 MILLIGRAM, QD
     Route: 048
     Dates: start: 20161111, end: 20171114
  41. CHLORPHENAMINE [Concomitant]
     Active Substance: CHLORPHENIRAMINE MALEATE
     Dosage: 10 MILLIGRAM, QW
     Route: 042
     Dates: start: 20180220, end: 20180424
  42. PHOSPHATE SANDOZ [Concomitant]
     Active Substance: SODIUM PHOSPHATE, MONOBASIC, ANHYDROUS
     Dosage: 2 DOSAGE FORM, QD (1 TABLET)
     Route: 048
     Dates: start: 20180921, end: 20180924
  43. CO?AMOXICLAV                       /00756801/ [Concomitant]
     Active Substance: AMOXICILLIN\CLAVULANIC ACID
     Dosage: 625 MILLIGRAM
     Route: 048
     Dates: start: 20180326, end: 20180326
  44. NOZINAN                            /00038601/ [Concomitant]
     Active Substance: LEVOMEPROMAZINE
     Dosage: 6 MG, 1X/DAY
     Route: 048
  45. VANCOMYCIN [Concomitant]
     Active Substance: VANCOMYCIN
     Dosage: 750 MILLIGRAM
     Route: 042
     Dates: start: 20180328, end: 20180329
  46. PACLITAXEL. [Suspect]
     Active Substance: PACLITAXEL
     Indication: HER2 POSITIVE BREAST CANCER
     Dosage: 138 MILLIGRAM, QW
     Route: 042
     Dates: start: 20160617
  47. LORAZEPAN [Concomitant]
     Active Substance: LORAZEPAM
     Dosage: 0.5 MILLIGRAM
     Route: 048
     Dates: start: 20181005
  48. DEXAMETHASONE. [Concomitant]
     Active Substance: DEXAMETHASONE
     Dosage: 14 MILLIGRAM, QW
     Route: 048
     Dates: start: 20180720, end: 20180820
  49. ONDANSETRON [Concomitant]
     Active Substance: ONDANSETRON
     Dosage: 8 MILLIGRAM, QW
     Route: 048
     Dates: start: 20180220, end: 20180424
  50. BECONASE AQ [Concomitant]
     Active Substance: BECLOMETHASONE DIPROPIONATE MONOHYDRATE
     Dosage: UNK UNK, QD (2 SPRAY)
     Route: 055
  51. GABAPENTIN. [Concomitant]
     Active Substance: GABAPENTIN
     Dosage: 1500 MILLIGRAM, QD
     Route: 048
     Dates: start: 20170215, end: 20171113
  52. MEGACE [Concomitant]
     Active Substance: MEGESTROL ACETATE
     Dosage: 160 MILLIGRAM, QD
     Route: 048
     Dates: start: 20180925
  53. RANITIDINE. [Concomitant]
     Active Substance: RANITIDINE
     Dosage: 50 MILLIGRAM, QW
     Route: 042
     Dates: start: 20160617, end: 20161111
  54. FLUCONAZOLE. [Concomitant]
     Active Substance: FLUCONAZOLE
     Dosage: 50 MILLIGRAM, QD (LIQUID)
     Route: 048
     Dates: start: 20180917, end: 20180926
  55. PARACETAMOL [Concomitant]
     Active Substance: ACETAMINOPHEN
     Dosage: 1 GRAM
     Route: 048
     Dates: start: 20170413
  56. OMEPRAZOLE. [Concomitant]
     Active Substance: OMEPRAZOLE
     Indication: GASTROOESOPHAGEAL REFLUX DISEASE
     Dosage: 20 MILLIGRAM, QD
     Route: 048
     Dates: start: 20170201, end: 20170214
  57. OMEPRAZOLE. [Concomitant]
     Active Substance: OMEPRAZOLE
     Dosage: 20 MILLIGRAM, QD
     Route: 048
     Dates: start: 20180515
  58. CLEXANE [Concomitant]
     Active Substance: ENOXAPARIN SODIUM
     Dosage: 40 MILLIGRAM, QD
     Route: 058
     Dates: start: 20180913

REACTIONS (7)
  - Erythema [Recovered/Resolved]
  - Fatigue [Recovered/Resolved]
  - Nausea [Recovered/Resolved]
  - Sepsis [Recovered/Resolved]
  - Neuropathy peripheral [Recovered/Resolved]
  - Paraesthesia [Not Recovered/Not Resolved]
  - Vomiting [Recovered/Resolved]

NARRATIVE: CASE EVENT DATE: 20160819
